FAERS Safety Report 8196414-7 (Version None)
Quarter: 2012Q1

REPORT INFORMATION
  Report Type: 
  Country: None (occurrence: None)
  Receive Date: 20120307
  Receipt Date: 20120307
  Transmission Date: 20120608
  Serious: Yes (Hospitalization)
  Sender: FDA-Public Use
  Company Number: None

PATIENT
  Sex: Female
  Weight: 57 kg

DRUGS (3)
  1. CARBOPLATIN [Suspect]
     Indication: NON-SMALL CELL LUNG CANCER
     Dosage: AUC=6 Q 3 WEEKS IV
     Route: 042
     Dates: start: 20120227
  2. PACLITAXEL [Suspect]
     Indication: NON-SMALL CELL LUNG CANCER
     Dosage: 200 MG/M2 Q 3 WEEKS IV
     Route: 042
     Dates: start: 20120227
  3. BEVACIZUMAB [Concomitant]

REACTIONS (3)
  - CONSTIPATION [None]
  - PYREXIA [None]
  - ABDOMINAL PAIN [None]
